FAERS Safety Report 11416418 (Version 1)
Quarter: 2015Q3

REPORT INFORMATION
  Report Type: Other
  Country: JP (occurrence: JP)
  Receive Date: 20150825
  Receipt Date: 20150825
  Transmission Date: 20151125
  Serious: Yes (Death, Hospitalization)
  Sender: FDA-Public Use
  Company Number: JP-ACTELION-A-CH2015-122901

PATIENT
  Age: 80 Year
  Sex: Male

DRUGS (4)
  1. PIRFENIDONE [Concomitant]
     Active Substance: PIRFENIDONE
  2. TRACLEER [Suspect]
     Active Substance: BOSENTAN
     Indication: PULMONARY ARTERIAL HYPERTENSION
     Route: 048
  3. BERAPROST [Concomitant]
     Active Substance: BERAPROST
  4. OXYGEN. [Concomitant]
     Active Substance: OXYGEN

REACTIONS (3)
  - Right ventricular failure [Fatal]
  - Concomitant disease aggravated [Fatal]
  - Dyspnoea [Fatal]
